FAERS Safety Report 6126401-1 (Version None)
Quarter: 2009Q1

REPORT INFORMATION
  Report Type: 
  Country: None (occurrence: None)
  Receive Date: 20090320
  Receipt Date: 20090316
  Transmission Date: 20090719
  Serious: Yes (Other)
  Sender: FDA-Public Use
  Company Number: US-BAYER-200912059NA

PATIENT
  Age: 38 Year
  Sex: Female
  Weight: 47 kg

DRUGS (1)
  1. MIRENA [Suspect]
     Indication: CONTRACEPTION
     Route: 015
     Dates: start: 20080207, end: 20090102

REACTIONS (3)
  - ABORTION SPONTANEOUS [None]
  - INTRA-UTERINE CONTRACEPTIVE DEVICE EXPELLED [None]
  - PREGNANCY WITH CONTRACEPTIVE DEVICE [None]
